FAERS Safety Report 11408684 (Version 1)
Quarter: 2015Q3

REPORT INFORMATION
  Report Type: Spontaneous
  Country: US (occurrence: US)
  Receive Date: 20150822
  Receipt Date: 20150822
  Transmission Date: 20151125
  Serious: No
  Sender: FDA-Public Use
  Company Number: US-009507513-1508USA008609

PATIENT
  Sex: Female
  Weight: 75.29 kg

DRUGS (1)
  1. NEXPLANON [Suspect]
     Active Substance: ETONOGESTREL
     Dosage: ONE INSERTION
     Route: 059
     Dates: start: 20150715

REACTIONS (1)
  - Device kink [Unknown]

NARRATIVE: CASE EVENT DATE: 2015
